FAERS Safety Report 8636804 (Version 3)
Quarter: 2013Q1

REPORT INFORMATION
  Report Type: Spontaneous
  Country: US (occurrence: US)
  Receive Date: 20120626
  Receipt Date: 20130314
  Transmission Date: 20140127
  Serious: Yes (Other)
  Sender: FDA-Public Use
  Company Number: US-FRI-1000031482

PATIENT
  Age: 80 None
  Sex: Male
  Weight: 80 kg

DRUGS (27)
  1. DALIRESP [Suspect]
     Indication: CHRONIC OBSTRUCTIVE PULMONARY DISEASE
     Dosage: 500 MCG
     Route: 048
     Dates: start: 20120518, end: 20120603
  2. DALIRESP [Suspect]
     Dosage: 250 MCG
     Route: 048
     Dates: start: 20120604, end: 201207
  3. METOPROLOL [Concomitant]
     Indication: HYPERTENSION
     Dosage: 12.5 MG
  4. LEVOXYL [Concomitant]
     Indication: HYPOTHYROIDISM
     Dosage: 150 MCG
     Route: 048
  5. FLOMAX [Concomitant]
     Indication: BENIGN PROSTATIC HYPERPLASIA
     Dosage: 0.8 MG
     Route: 048
  6. SYMBICORT [Concomitant]
     Indication: CHRONIC OBSTRUCTIVE PULMONARY DISEASE
     Dosage: 160/4.5 MCG  2 PUFFS BID
  7. AVAPRO [Concomitant]
     Indication: HYPERTENSION
     Dosage: 150 MG
     Route: 048
  8. METFORMIN HCL [Concomitant]
     Indication: TYPE 2 DIABETES MELLITUS
     Dosage: 1000 MG
     Route: 048
  9. LIPITOR [Concomitant]
     Indication: HYPERLIPIDAEMIA
     Dosage: 40 MG
     Route: 048
  10. PREVACID [Concomitant]
     Indication: GASTROOESOPHAGEAL REFLUX DISEASE
     Dosage: 30 MG
     Route: 048
  11. ASPIRIN [Concomitant]
     Dosage: 162 MG
  12. PLETAL [Concomitant]
  13. VALIUM [Concomitant]
     Dosage: 5 MG
     Route: 048
  14. LIDOCAINE [Concomitant]
  15. LASIX [Concomitant]
     Route: 048
  16. JANUVIA [Concomitant]
     Dosage: 50 MG
     Route: 048
  17. ZANTAC [Concomitant]
     Dosage: 30 MG
     Route: 048
  18. QUININE [Concomitant]
     Dosage: 300 MG
  19. VITAMIN B-6 [Concomitant]
     Dosage: 25 MG
     Route: 048
  20. FIBER [Concomitant]
  21. VITAMIN D [Concomitant]
     Dosage: 2000 IU
     Route: 048
  22. SENNA [Concomitant]
     Route: 048
  23. FERROUS FUMARATE [Concomitant]
     Dosage: 325 MG
     Route: 048
  24. CALCIUM-MAGNESIUM-ZINC [Concomitant]
     Dosage: 1000/400/15 MG
     Route: 048
  25. CENTRUM SILVER [Concomitant]
     Route: 048
  26. SINGULAR [Concomitant]
     Dosage: 10 MG
     Route: 048
  27. DOXYCYCLINE [Concomitant]
     Dosage: 200 MG
     Route: 048

REACTIONS (5)
  - Palpitations [Recovered/Resolved]
  - Heart rate increased [Recovered/Resolved]
  - Atrial flutter [Unknown]
  - Feeling jittery [Unknown]
  - Chest discomfort [Unknown]
